FAERS Safety Report 6302481-5 (Version None)
Quarter: 2009Q3

REPORT INFORMATION
  Report Type: 
  Country: None (occurrence: None)
  Receive Date: 20090810
  Receipt Date: 20090804
  Transmission Date: 20100115
  Serious: Yes (Death)
  Sender: FDA-Public Use
  Company Number: CN-ROCHE-638859

PATIENT
  Sex: Male
  Weight: 52 kg

DRUGS (15)
  1. CAPECITABINE [Suspect]
     Dosage: LAST DOSE PRIOR TO SAE: 1APR 2009, FREQUENCY: D1-D14 Q3W,
     Route: 048
     Dates: start: 20090330, end: 20090401
  2. CAPECITABINE [Suspect]
     Dosage: DOSE WAS REDUCED, FREQUENCY: D1-D14 Q3W
     Route: 048
     Dates: start: 20090424
  3. CAPECITABINE [Suspect]
     Dosage: LAST DOSE PRIOR TO SAE: 19 MAY 2009, FREQUENCY: D1-D14 Q3W, UNIT: MG/300, ROUTE: BID PO
     Route: 048
  4. CAPECITABINE [Suspect]
     Dosage: ON DAY 1-14 Q3W, DATE OF LAST DOSE PRIOR TO SAE: 19 MAY 2009
     Route: 048
  5. PLACEBO [Suspect]
     Dosage: FORM: INFUSION
     Route: 042
     Dates: start: 20090330, end: 20090409
  6. PLACEBO [Suspect]
     Dosage: FREQUENCY REPORTED AS D1Q3W, DOSE FORM REPORTED AS INFUSION, UNITS REPORTED AS MG 375
     Route: 042
     Dates: start: 20090609, end: 20090615
  7. CISPLATIN [Suspect]
     Dosage: FORM: INFUSION, DAY 1 EVERY THREE WEEKS
     Route: 042
     Dates: start: 20090330, end: 20090330
  8. CISPLATIN [Suspect]
     Dosage: FORM: INFUSION, DOSING FREQ: DAY 1 EVERY THREE WEEKS; DOSE REDUCED
     Route: 042
     Dates: start: 20090424
  9. CISPLATIN [Suspect]
     Dosage: FREQUENCY REPORTED AS D1Q3W, UNIT MG 97.2, FORM: INFUSION, LAST DOSE PRIOR TO SAE 15 MAY 2009.
     Route: 042
  10. OMEPRAZOLE [Concomitant]
     Dates: start: 20090409, end: 20090409
  11. POTASSIUM ASPARTATE [Concomitant]
     Dosage: DRUG REPORTED: POTASSIUM MAGNESIUM ASPARTATE
     Dates: start: 20090409, end: 20090409
  12. POTASSIUM ASPARTATE [Concomitant]
     Dosage: DRUG REPORTED: POTASSIUM MAGNESIUM ASPARTATE
     Dates: start: 20090613, end: 20090618
  13. ELECTROLYTES [Concomitant]
     Dosage: DRUG: SINGLE SUGAR ELECTROLYTE
     Dates: start: 20090409, end: 20090409
  14. VITAMIN B6 [Concomitant]
     Dates: start: 20090613, end: 20090618
  15. AMINO ACID INJ [Concomitant]
     Dosage: DRUG NAME REPORTED AS COMPOUND AMINO ACID INJECTION.
     Dates: start: 20090613, end: 20090618

REACTIONS (1)
  - SHOCK HAEMORRHAGIC [None]
